FAERS Safety Report 4981619-6 (Version None)
Quarter: 2006Q2

REPORT INFORMATION
  Report Type: 
  Country: None (occurrence: None)
  Receive Date: 20060425
  Receipt Date: 20060413
  Transmission Date: 20061013
  Serious: Yes (Other)
  Sender: FDA-Public Use
  Company Number: PHBS2006SE05468

PATIENT
  Age: 87 Year

DRUGS (3)
  1. AREDIA [Suspect]
     Indication: MULTIPLE MYELOMA
     Dosage: 90 MG, UNK
     Route: 065
     Dates: start: 20000401
  2. ZOMETA [Suspect]
     Indication: MULTIPLE MYELOMA
     Dosage: 4 MG, UNK
     Route: 065
     Dates: end: 20051201
  3. GAMMAGARD [Concomitant]
     Route: 065

REACTIONS (8)
  - BONE DISORDER [None]
  - INFECTION [None]
  - ORAL SURGERY [None]
  - OSTEITIS [None]
  - OSTEONECROSIS [None]
  - PAIN IN JAW [None]
  - PRIMARY SEQUESTRUM [None]
  - TOOTH EXTRACTION [None]
